FAERS Safety Report 23863847 (Version 1)
Quarter: 2024Q2

REPORT INFORMATION
  Report Type: Spontaneous
  Country: CN (occurrence: CN)
  Receive Date: 20240516
  Receipt Date: 20240516
  Transmission Date: 20240716
  Serious: Yes (Hospitalization, Other)
  Sender: FDA-Public Use
  Company Number: CN-TEVA-VS-3182499

PATIENT
  Age: 54 Year
  Sex: Female

DRUGS (7)
  1. AZILECT [Suspect]
     Active Substance: RASAGILINE MESYLATE
     Indication: Parkinson^s disease
     Route: 048
  2. ENTACAPONE [Suspect]
     Active Substance: ENTACAPONE
     Dosage: 0.1
     Route: 048
  3. BENSERAZIDE\LEVODOPA [Suspect]
     Active Substance: BENSERAZIDE\LEVODOPA
     Route: 065
  4. PRAMIPEXOLE [Suspect]
     Active Substance: PRAMIPEXOLE\PRAMIPEXOLE DIHYDROCHLORIDE
     Dosage: TIME INTERVAL: 0.33333333 DAYS: SUSTAINED RELEASE TABLET.
     Route: 048
  5. CARBIDOPA LEVODOPA [Suspect]
     Active Substance: CARBIDOPA\LEVODOPA
     Route: 048
  6. TRIHEXYPHENIDYL [Suspect]
     Active Substance: TRIHEXYPHENIDYL
     Route: 048
  7. PROPRANOLOL HYDROCHLORIDE [Suspect]
     Active Substance: PROPRANOLOL HYDROCHLORIDE
     Dosage: TIME INTERVAL: 0.33333333 DAYS
     Route: 065

REACTIONS (16)
  - Pelvic fracture [Unknown]
  - Hyperhidrosis [Unknown]
  - Parkinsonism [Recovering/Resolving]
  - Muscle tightness [Unknown]
  - Gait disturbance [Recovered/Resolved]
  - Dysphagia [Unknown]
  - Abdominal pain [Unknown]
  - Dizziness [Unknown]
  - Heart rate increased [Unknown]
  - Dyspnoea [Unknown]
  - Road traffic accident [Unknown]
  - Loss of consciousness [Recovered/Resolved]
  - Poor quality sleep [Unknown]
  - Abnormal dreams [Unknown]
  - Constipation [Unknown]
  - Gait disturbance [Unknown]

NARRATIVE: CASE EVENT DATE: 20240101
